FAERS Safety Report 21501873 (Version 2)
Quarter: 2022Q4

REPORT INFORMATION
  Report Type: Spontaneous
  Country: NL (occurrence: NL)
  Receive Date: 20221025
  Receipt Date: 20221128
  Transmission Date: 20230113
  Serious: Yes (Hospitalization, Other)
  Sender: FDA-Public Use
  Company Number: NL-SA-2022SA417874

PATIENT
  Age: 80 Year
  Sex: Male

DRUGS (12)
  1. DOCETAXEL [Suspect]
     Active Substance: DOCETAXEL
     Indication: Neoplasm
     Dosage: 75 MILLIGRAM/SQ. METER, Q3W
     Route: 042
     Dates: start: 20220629
  2. MIRZOTAMAB CLEZUTOCLAX [Suspect]
     Active Substance: MIRZOTAMAB CLEZUTOCLAX
     Indication: Neoplasm
     Dosage: 16 MILLIGRAM/KILOGRAM,Q3W
     Route: 042
     Dates: start: 20220629
  3. LOPERAMIDE OXIDE [Concomitant]
     Active Substance: LOPERAMIDE OXIDE
     Indication: Prophylaxis against diarrhoea
     Dosage: 12 MG
     Route: 065
     Dates: start: 20220630
  4. HYDROCHLOROTHIAZIDE [Concomitant]
     Active Substance: HYDROCHLOROTHIAZIDE
     Indication: Hypertension
     Dosage: 12.5 MILLIGRAM, ONCE A DAY,
     Route: 065
     Dates: start: 20220204
  5. ALBUTEROL SULFATE [Concomitant]
     Active Substance: ALBUTEROL SULFATE
     Indication: Respiratory disorder prophylaxis
     Dosage: 100 MICROGRAM,100 UG, Q4D
     Route: 065
     Dates: start: 20220404
  6. METOPROLOL [Concomitant]
     Active Substance: METOPROLOL
     Indication: Cerebrovascular accident
     Dosage: 100 MILLIGRAM, ONCE A DAY
     Route: 065
     Dates: start: 20220608
  7. TAMSULOSIN HYDROCHLORIDE [Concomitant]
     Active Substance: TAMSULOSIN HYDROCHLORIDE
     Indication: Urinary tract infection
     Dosage: 0.4 MILLIGRAM, ONCE A DAY
     Route: 065
     Dates: start: 20220404
  8. CLOPIDOGREL [Concomitant]
     Active Substance: CLOPIDOGREL BISULFATE
     Indication: Cerebrovascular accident
     Dosage: 75 MILLIGRAM, ONCE A DAY
     Route: 065
     Dates: start: 20220204
  9. IRBESARTAN [Concomitant]
     Active Substance: IRBESARTAN
     Indication: Hypertension
     Dosage: 300 MILLIGRAM, ONCE A DAY
     Route: 065
     Dates: start: 20220404
  10. AMOXICILLIN\CLAVULANATE POTASSIUM [Concomitant]
     Active Substance: AMOXICILLIN\CLAVULANATE POTASSIUM
     Indication: Diarrhoea
     Dosage: 625 MILLIGRAM, 3 TIMES A DAY
     Route: 065
     Dates: start: 20220929, end: 20220930
  11. AMOXICILLIN\CLAVULANATE POTASSIUM [Concomitant]
     Active Substance: AMOXICILLIN\CLAVULANATE POTASSIUM
     Indication: Cholecystitis
     Dosage: 625 MILLIGRAM, 3 TIMES A DAY
     Route: 065
     Dates: start: 20221023
  12. AMOXICILLIN\CLAVULANATE POTASSIUM [Concomitant]
     Active Substance: AMOXICILLIN\CLAVULANATE POTASSIUM
     Dosage: 625 MILLIGRAM, 3 TIMES A DAY
     Route: 065
     Dates: start: 20220912, end: 20220926

REACTIONS (6)
  - Hypokalaemia [Not Recovered/Not Resolved]
  - Cholecystitis [Not Recovered/Not Resolved]
  - Nausea [Not Recovered/Not Resolved]
  - Vomiting [Not Recovered/Not Resolved]
  - Diarrhoea [Not Recovered/Not Resolved]
  - Renal impairment [Unknown]

NARRATIVE: CASE EVENT DATE: 20220926
